FAERS Safety Report 17161371 (Version 2)
Quarter: 2021Q3

REPORT INFORMATION
  Report Type: Spontaneous
  Country: US (occurrence: US)
  Receive Date: 20191216
  Receipt Date: 20210719
  Transmission Date: 20211014
  Serious: No
  Sender: FDA-Public Use
  Company Number: US-ALKERMES INC.-ALK-2019-006480

PATIENT
  Age: 31 Year
  Sex: Female

DRUGS (4)
  1. ARISTADA [Suspect]
     Active Substance: ARIPIPRAZOLE LAUROXIL
     Indication: SCHIZOPHRENIA
     Dosage: 882 MG, UNK
     Route: 030
     Dates: start: 202107
  2. ARISTADA [Suspect]
     Active Substance: ARIPIPRAZOLE LAUROXIL
     Dosage: 882 MG, UNK
     Route: 030
     Dates: start: 2019, end: 2019
  3. ARISTADA [Suspect]
     Active Substance: ARIPIPRAZOLE LAUROXIL
     Dosage: 882 MG, UNK
     Route: 030
     Dates: start: 201910, end: 201910
  4. OTHER THERAPEUTIC PRODUCTS [Concomitant]
     Active Substance: UNSPECIFIED INGREDIENT
     Indication: PRODUCT USED FOR UNKNOWN INDICATION
     Dosage: UNK

REACTIONS (7)
  - Schizophrenia [Not Recovered/Not Resolved]
  - Needle issue [Recovered/Resolved]
  - Hallucination, auditory [Not Recovered/Not Resolved]
  - Product administration error [Recovered/Resolved]
  - Soliloquy [Not Recovered/Not Resolved]
  - Product dose omission issue [Not Recovered/Not Resolved]
  - Syringe issue [Not Recovered/Not Resolved]

NARRATIVE: CASE EVENT DATE: 2019
